FAERS Safety Report 10293315 (Version 1)
Quarter: 2014Q3

REPORT INFORMATION
  Report Type: Spontaneous
  Country: US (occurrence: US)
  Receive Date: 20140710
  Receipt Date: 20140710
  Transmission Date: 20150326
  Serious: Yes (Hospitalization)
  Sender: FDA-Public Use
  Company Number: US-GLAXOSMITHKLINE-A1079960A

PATIENT
  Age: 25 Year
  Sex: Female

DRUGS (2)
  1. VOTRIENT [Suspect]
     Active Substance: PAZOPANIB HYDROCHLORIDE
     Indication: MALIGNANT CONNECTIVE TISSUE NEOPLASM
     Dosage: 800MG PER DAY
     Route: 048
     Dates: start: 20140531
  2. PRENATAL VITAMINS [Concomitant]
     Active Substance: VITAMINS

REACTIONS (5)
  - Off label use [Unknown]
  - Dyspnoea [Unknown]
  - Lung disorder [Unknown]
  - Muscular weakness [Unknown]
  - Pericardial effusion [Unknown]

NARRATIVE: CASE EVENT DATE: 2014
